FAERS Safety Report 10244053 (Version 1)
Quarter: 2014Q2

REPORT INFORMATION
  Report Type: Spontaneous
  Country: US (occurrence: None)
  Receive Date: 20140616
  Receipt Date: 20140616
  Transmission Date: 20141212
  Serious: No
  Sender: FDA-Public Use
  Company Number: None

PATIENT
  Age: 52 Year
  Sex: Female

DRUGS (1)
  1. COPAXONE? [Suspect]
     Indication: MULTIPLE SCLEROSIS
     Route: 058
     Dates: start: 20040610

REACTIONS (5)
  - Injection site pain [None]
  - Erythema [None]
  - Swelling face [None]
  - Dyspnoea [None]
  - Nausea [None]
